FAERS Safety Report 16957810 (Version 2)
Quarter: 2019Q4

REPORT INFORMATION
  Report Type: Report from Study
  Country: US (occurrence: US)
  Receive Date: 20191024
  Receipt Date: 20191112
  Transmission Date: 20200122
  Serious: No
  Sender: FDA-Public Use
  Company Number: US-SA-2019SA292025

PATIENT
  Age: 44 Year
  Sex: Female
  Weight: 47.17 kg

DRUGS (6)
  1. TERIFLUNOMIDE. [Suspect]
     Active Substance: TERIFLUNOMIDE
     Indication: MULTIPLE SCLEROSIS
     Dosage: 14 MG, QD
     Route: 048
     Dates: start: 20191007, end: 20191011
  2. MAGNESIUM [Concomitant]
     Active Substance: MAGNESIUM
  3. VITAMIN D3 [Concomitant]
     Active Substance: CHOLECALCIFEROL
  4. DIAZEPAM. [Concomitant]
     Active Substance: DIAZEPAM
  5. CALCIUM [Concomitant]
     Active Substance: CALCIUM
  6. BACLOFEN. [Concomitant]
     Active Substance: BACLOFEN

REACTIONS (7)
  - Nausea [Recovering/Resolving]
  - Arthralgia [Unknown]
  - Back pain [Recovering/Resolving]
  - Flank pain [Unknown]
  - Dyspepsia [Recovering/Resolving]
  - Hypersensitivity [Recovering/Resolving]
  - Fatigue [Unknown]

NARRATIVE: CASE EVENT DATE: 201910
